FAERS Safety Report 4826239-9 (Version None)
Quarter: 2005Q4

REPORT INFORMATION
  Report Type: 
  Country: None (occurrence: None)
  Receive Date: 20051109
  Receipt Date: 20051109
  Transmission Date: 20060501
  Serious: Yes (Other)
  Sender: FDA-Public Use
  Company Number: None

PATIENT
  Age: 56 Year
  Sex: Male
  Weight: 107.9561 kg

DRUGS (2)
  1. CEFTRIAXONE [Suspect]
     Indication: ARTHRITIS INFECTIVE
     Dosage: 2 GM Q 24 H IV PUSH
     Route: 042
     Dates: start: 20051006, end: 20051114
  2. CEFTRIAXONE [Suspect]
     Dosage: 2GM Q24H IV PUSH
     Route: 042
     Dates: start: 20051006, end: 20051114

REACTIONS (2)
  - PRURITUS [None]
  - RASH [None]
